FAERS Safety Report 5282951-1 (Version None)
Quarter: 2007Q1

REPORT INFORMATION
  Report Type: 
  Country: None (occurrence: None)
  Receive Date: 20070327
  Receipt Date: 20070313
  Transmission Date: 20070707
  Serious: Yes (Death, Hospitalization)
  Sender: FDA-Public Use
  Company Number: 237633

PATIENT
  Age: 51 Year
  Sex: Female
  Weight: 54.1 kg

DRUGS (5)
  1. AVASTIN [Suspect]
     Indication: BREAST CANCER METASTATIC
     Dosage: 777 MG, Q3W, INTRAVENOUS
     Route: 042
     Dates: start: 20061123, end: 20070228
  2. DOCETAXEL(DOCETAXEL) [Suspect]
     Indication: BREAST CANCER METASTATIC
     Dosage: 60 MG, Q3W, INTRAVENOUS
     Route: 042
     Dates: start: 20061123, end: 20070228
  3. CARBAMAZEPINE [Concomitant]
  4. DEXAMETHASONE TAB [Concomitant]
  5. MORPHINE [Concomitant]

REACTIONS (11)
  - ABDOMINAL DISTENSION [None]
  - ATRIAL FIBRILLATION [None]
  - CONDITION AGGRAVATED [None]
  - CONFUSIONAL STATE [None]
  - DIARRHOEA [None]
  - FAECAL INCONTINENCE [None]
  - NEUTROPENIA [None]
  - PNEUMONIA [None]
  - RESPIRATORY DISTRESS [None]
  - SEPSIS [None]
  - WHITE BLOOD CELL COUNT DECREASED [None]
